FAERS Safety Report 5538118-2 (Version None)
Quarter: 2007Q4

REPORT INFORMATION
  Report Type: 
  Country: None (occurrence: None)
  Receive Date: 20071207
  Receipt Date: 20071126
  Transmission Date: 20080405
  Serious: Yes (Other)
  Sender: FDA-Public Use
  Company Number: BR-PFIZER INC-2007101164

PATIENT
  Sex: Female

DRUGS (3)
  1. LIPITOR [Suspect]
     Indication: HYPERCHOLESTEROLAEMIA
     Route: 048
  2. ALL OTHER THERAPEUTIC PRODUCTS [Concomitant]
     Dosage: TEXT:IMIPRAMINE 20MG + DIAZEPAM 5MG
     Route: 048
  3. SYNTHROID [Concomitant]
     Route: 048

REACTIONS (1)
  - ANTINUCLEAR ANTIBODY POSITIVE [None]
